FAERS Safety Report 9972692 (Version 2)
Quarter: 2014Q1

REPORT INFORMATION
  Report Type: Spontaneous
  Country: US (occurrence: US)
  Receive Date: 20140306
  Receipt Date: 20140306
  Transmission Date: 20141002
  Serious: Yes (Death, Hospitalization)
  Sender: FDA-Public Use
  Company Number: US-BRISTOL-MYERS SQUIBB COMPANY-20089751

PATIENT
  Age: 57 Year
  Sex: Male

DRUGS (1)
  1. SPRYCEL (CML) TABS 100 MG [Suspect]
     Indication: MYELOID LEUKAEMIA
     Route: 048
     Dates: start: 20130917

REACTIONS (2)
  - Death [Fatal]
  - H1N1 influenza [Unknown]
